FAERS Safety Report 7255285-3 (Version None)
Quarter: 2011Q1

REPORT INFORMATION
  Report Type: 
  Country: None (occurrence: None)
  Receive Date: 20110129
  Receipt Date: 20100227
  Transmission Date: 20110831
  Serious: No
  Sender: FDA-Public Use
  Company Number: US-ABBOTT-10P-163-0629331-00

PATIENT
  Sex: Female
  Weight: 63.56 kg

DRUGS (2)
  1. METHOTREXATE [Concomitant]
     Indication: PRODUCT USED FOR UNKNOWN INDICATION
  2. HUMIRA [Suspect]
     Indication: RHEUMATOID ARTHRITIS

REACTIONS (4)
  - INJECTION SITE PAPULE [None]
  - VASCULAR RUPTURE [None]
  - INJECTION SITE DISCOLOURATION [None]
  - INJECTION SITE SWELLING [None]
